FAERS Safety Report 5646580-X (Version None)
Quarter: 2008Q1

REPORT INFORMATION
  Report Type: 
  Country: None (occurrence: None)
  Receive Date: 20080227
  Receipt Date: 20080215
  Transmission Date: 20080703
  Serious: Yes (Life-Threatening)
  Sender: FDA-Public Use
  Company Number: 100#03#2008-00894

PATIENT
  Age: 60 Year
  Sex: Female

DRUGS (3)
  1. ALENDRONIC ACID [Suspect]
     Indication: OSTEOPOROSIS
     Dosage: 70 MG, ORAL
     Route: 048
     Dates: start: 20071119, end: 20080114
  2. CREON (ALPHA AMYLASE, AMYLASE, LIPASE, PANCREATIN, PROTEASE) [Concomitant]
  3. URSODIOL [Concomitant]

REACTIONS (2)
  - CHOLANGITIS [None]
  - HYPONATRAEMIA [None]
